FAERS Safety Report 9288376 (Version 1)
Quarter: 2013Q2

REPORT INFORMATION
  Report Type: Spontaneous
  Country: US (occurrence: None)
  Receive Date: 20130513
  Receipt Date: 20130513
  Transmission Date: 20140414
  Serious: Yes (Other)
  Sender: FDA-Public Use
  Company Number: None

PATIENT
  Age: 56 Year
  Sex: Female
  Weight: 57.15 kg

DRUGS (2)
  1. PROLIA 60MG/ML AMGEN [Suspect]
     Indication: OSTEOPOROSIS
     Dosage: 60 MG/ML 2X YR SQ
     Dates: start: 20120815, end: 20120815
  2. PROLIA [Concomitant]

REACTIONS (4)
  - Tooth infection [None]
  - Ear infection [None]
  - Muscular weakness [None]
  - Depression [None]
